FAERS Safety Report 8673148 (Version 2)
Quarter: 2013Q4

REPORT INFORMATION
  Report Type: Spontaneous
  Country: FR (occurrence: FR)
  Receive Date: 20120719
  Receipt Date: 20131107
  Transmission Date: 20140711
  Serious: Yes (Other)
  Sender: FDA-Public Use
  Company Number: FR-009507513-1207FRA003456

PATIENT
  Age: 47 Year
  Sex: Male

DRUGS (3)
  1. VIRAFERONPEG [Suspect]
     Indication: PRODUCT USED FOR UNKNOWN INDICATION
     Dosage: 150 MCG, QW
     Route: 058
     Dates: start: 201103, end: 201106
  2. VIRAFERONPEG [Suspect]
     Dosage: 80 UNK, UNK
  3. REBETOL [Concomitant]
     Indication: PRODUCT USED FOR UNKNOWN INDICATION
     Dosage: UNK
     Route: 048
     Dates: start: 201103

REACTIONS (5)
  - Major depression [Recovering/Resolving]
  - Aggression [Recovering/Resolving]
  - Medication error [Recovered/Resolved]
  - Drug dispensing error [Recovered/Resolved]
  - Accidental overdose [Recovered/Resolved]
